FAERS Safety Report 9598439 (Version 1)
Quarter: 2013Q4

REPORT INFORMATION
  Report Type: Spontaneous
  Country: US (occurrence: US)
  Receive Date: 20131004
  Receipt Date: 20131004
  Transmission Date: 20140711
  Serious: No
  Sender: FDA-Public Use
  Company Number: US-AMGEN-USASP2013023742

PATIENT
  Age: 54 Year
  Sex: Female
  Weight: 77.1 kg

DRUGS (13)
  1. ENBREL [Suspect]
     Indication: PRODUCT USED FOR UNKNOWN INDICATION
     Dosage: 50 MG, QWK
     Route: 058
  2. HUMIRA [Concomitant]
     Dosage: 40 MG/0.8
  3. ARAVA [Concomitant]
     Dosage: 10 MG, UNK
  4. ASPIRIN [Concomitant]
     Dosage: 81 MG, UNK
  5. HYDROCHLOROTH [Concomitant]
     Dosage: 12.5 MG, UNK
  6. METOPROLOL [Concomitant]
     Dosage: 100 MG, UNK
  7. LEXAPRO [Concomitant]
     Dosage: 10 MG, UNK
  8. MOBIC [Concomitant]
     Dosage: 7.5 MG, UNK
  9. MAGNESIUM [Concomitant]
     Dosage: 200 MG, UNK
  10. IRON [Concomitant]
     Dosage: 18 MG, UNK
  11. VITAMIN D                          /00107901/ [Concomitant]
     Dosage: 1000 UNIT, UNK
  12. VITAMIN C                          /00008001/ [Concomitant]
     Dosage: 500 MG, UNK
  13. NUCYNTA [Concomitant]
     Dosage: 50 MG, UNK

REACTIONS (1)
  - Drug effect decreased [Unknown]
